FAERS Safety Report 19280119 (Version 1)
Quarter: 2021Q2

REPORT INFORMATION
  Report Type: Spontaneous
  Country: IR (occurrence: IR)
  Receive Date: 20210520
  Receipt Date: 20210520
  Transmission Date: 20210717
  Serious: Yes (Hospitalization, Other)
  Sender: FDA-Public Use
  Company Number: IR-NEXUS PHARMA-000039

PATIENT
  Age: 28 Year
  Sex: Female

DRUGS (2)
  1. ARSENIC [Suspect]
     Active Substance: ARSENIC
     Indication: ACUTE PROMYELOCYTIC LEUKAEMIA
     Route: 042
  2. TRETINOIN. [Suspect]
     Active Substance: TRETINOIN
     Indication: ACUTE PROMYELOCYTIC LEUKAEMIA
     Route: 048

REACTIONS (6)
  - Anaemia [Unknown]
  - Depressed level of consciousness [Unknown]
  - Headache [Unknown]
  - Thrombocytosis [Recovered/Resolved]
  - Retinal haemorrhage [Unknown]
  - Seizure [Recovered/Resolved]
